FAERS Safety Report 19057190 (Version 3)
Quarter: 2022Q1

REPORT INFORMATION
  Report Type: Spontaneous
  Country: US (occurrence: US)
  Receive Date: 20210325
  Receipt Date: 20220204
  Transmission Date: 20220423
  Serious: Yes (Hospitalization, Other)
  Sender: FDA-Public Use
  Company Number: US-PFIZER INC-2021318706

PATIENT
  Age: 32 Year
  Sex: Female

DRUGS (2)
  1. LYRICA [Suspect]
     Active Substance: PREGABALIN
     Indication: Fibromyalgia
     Dosage: 75 MG, 2X/DAY (TAKE 1 (ONE) CAPSULE BY MOUTH 2 TIMES DAILY)
     Route: 048
  2. LYRICA [Suspect]
     Active Substance: PREGABALIN
     Indication: Small fibre neuropathy
     Dosage: 150 MG, 1X/DAY (TAKE 2 (TWO) CAPSULES BY MOUTH AT BEDTIME)
     Route: 048

REACTIONS (8)
  - Pain [Unknown]
  - Functional gastrointestinal disorder [Unknown]
  - Spinal cord disorder [Unknown]
  - Heart rate decreased [Unknown]
  - Mobility decreased [Unknown]
  - Hypoaesthesia [Unknown]
  - Dysstasia [Unknown]
  - Dyspnoea [Unknown]
